FAERS Safety Report 17286065 (Version 2)
Quarter: 2021Q2

REPORT INFORMATION
  Report Type: Spontaneous
  Country: AT (occurrence: AT)
  Receive Date: 20200118
  Receipt Date: 20210601
  Transmission Date: 20210716
  Serious: Yes (Death, Hospitalization, Other)
  Sender: FDA-Public Use
  Company Number: AT-AUROBINDO-AUR-APL-2020-002804

PATIENT
  Age: 80 Year
  Sex: Female

DRUGS (88)
  1. IBANDRONIC ACID. [Interacting]
     Active Substance: IBANDRONIC ACID
     Dosage: 3 MILLIGRAM,3 MONTH (EVERY 3 MONTHS)
     Route: 065
  2. LISALGIL [Interacting]
     Active Substance: METAMIZOLE SODIUM
     Indication: PRODUCT USED FOR UNKNOWN INDICATION
     Dosage: 25 MILLIGRAM, ONCE A DAY, (25 MG, BID)
     Route: 042
  3. OXYGEN. [Interacting]
     Active Substance: OXYGEN
     Indication: PERIPHERAL VENOUS DISEASE
     Dosage: 2 LITER, (2L/MIN)
     Route: 065
  4. TRAMADOL. [Interacting]
     Active Substance: TRAMADOL
     Indication: PAIN
     Dosage: 200 MILLIGRAM, ONCE A DAY, ONCE AT NIGHT
     Route: 065
  5. IPRATROPIUM [Concomitant]
     Active Substance: IPRATROPIUM
     Indication: CHRONIC OBSTRUCTIVE PULMONARY DISEASE
     Dosage: 0.02 MILLIGRAM,(PUFFS AS NEEDED IN CASE OF DYSPNOEA; MAXIMUM 4X2)
     Route: 065
  6. SALMETEROL [Concomitant]
     Active Substance: SALMETEROL
     Dosage: 94 MICROGRAM, ONCE A DAY,QD
     Route: 055
  7. FENOTEROL [Concomitant]
     Active Substance: FENOTEROL
     Indication: CHRONIC OBSTRUCTIVE PULMONARY DISEASE
     Dosage: UNK, DAILY (0.05 MG/0.02 MG), BID
     Route: 055
  8. LEVOTHYROXINE. [Concomitant]
     Active Substance: LEVOTHYROXINE
     Indication: HYPOTHYROIDISM
     Dosage: 75 MICROGRAM, ONCE A DAY
     Route: 065
  9. ACETYLCYSTEINE. [Concomitant]
     Active Substance: ACETYLCYSTEINE
     Indication: CHRONIC OBSTRUCTIVE PULMONARY DISEASE
     Dosage: 600 MILLIGRAM, ONCE A DAY, (QD (1?0?0))
     Route: 065
  10. ACETAZOLAMIDE. [Interacting]
     Active Substance: ACETAZOLAMIDE
     Dosage: 50 MILLIGRAM, ONCE A DAY, (ONCE IN THE MORNING)
     Route: 065
  11. ALPRAZOLAM. [Suspect]
     Active Substance: ALPRAZOLAM
     Indication: DYSPNOEA
     Dosage: 0.5 MILLIGRAM
     Route: 065
  12. ATORVASTATIN [Interacting]
     Active Substance: ATORVASTATIN
     Indication: HYPERCHOLESTEROLAEMIA
     Dosage: 40 MILLIGRAM, ONCE A DAY,ONCE A NIGHT
     Route: 065
  13. DULOXETINE. [Suspect]
     Active Substance: DULOXETINE
     Indication: DEPRESSION
     Dosage: UNK
     Route: 065
  14. LEVODOPA [Interacting]
     Active Substance: LEVODOPA
     Indication: RESTLESS LEGS SYNDROME
     Dosage: 100 MILLIGRAM, ONCE A DAY, (ONCE AT NIGHT)
     Route: 065
  15. RISPERIDONE. [Suspect]
     Active Substance: RISPERIDONE
     Indication: PRODUCT USED FOR UNKNOWN INDICATION
     Dosage: 1 MILLIGRAM,(HALF DOSE AT NIGHT)
     Route: 065
  16. SERTRALINE [Suspect]
     Active Substance: SERTRALINE HYDROCHLORIDE
     Indication: RESTLESS LEGS SYNDROME
     Dosage: 25 MILLIGRAM, ONCE A DAY, QD
     Route: 065
  17. VITAMIN D [Interacting]
     Active Substance: VITAMIN D NOS
     Dosage: 16000 INTERNATIONAL UNIT, (16000 IU, 1/WEEK)
     Route: 065
  18. IPRATROPIUM [Concomitant]
     Active Substance: IPRATROPIUM
     Dosage: 0.02 MILLIGRAM,(PUFFS AS NEEDED IN CASE OF DYSPNOEA; MAXIMUM 4X2)
     Route: 055
  19. PREDNISONE. [Concomitant]
     Active Substance: PREDNISONE
     Indication: CHRONIC OBSTRUCTIVE PULMONARY DISEASE
     Dosage: 5 MILLIGRAM DAILY; ONCE IN THE MORNING
     Route: 065
  20. DIPHENHYDRAMINE. [Concomitant]
     Active Substance: DIPHENHYDRAMINE
     Indication: ANTIALLERGIC THERAPY
     Dosage: UNK
     Route: 065
  21. SALMETEROL [Concomitant]
     Active Substance: SALMETEROL
     Dosage: 47 MICROGRAM, ONCE A DAY (BID (2?0?2) )
     Route: 055
  22. IBANDRONIC ACID. [Concomitant]
     Active Substance: IBANDRONIC ACID
     Indication: OSTEOPOROSIS
     Dosage: UNK
     Route: 065
  23. IBANDRONIC ACID. [Concomitant]
     Active Substance: IBANDRONIC ACID
     Indication: PERIPHERAL VENOUS DISEASE
     Dosage: 3 MILLIGRAM,EVERY 3 MONTHS
     Route: 065
  24. CLOPIDOGREL [Suspect]
     Active Substance: CLOPIDOGREL BISULFATE
     Indication: CORONARY ARTERY DISEASE
     Dosage: 75 MILLIGRAM, ONCE A DAY
     Route: 065
  25. ACETYLCYSTEINE. [Interacting]
     Active Substance: ACETYLCYSTEINE
     Indication: CHRONIC OBSTRUCTIVE PULMONARY DISEASE
     Dosage: 600 MILLIGRAM, ONCE A DAY, (ONCE IN THE MORNING FOR 7 DAYS)
     Route: 065
  26. ALPRAZOLAM. [Suspect]
     Active Substance: ALPRAZOLAM
     Indication: FEAR
     Dosage: 0.5 MILLIGRAM,(IN TWO DIVIDED DOSES, ONE AT MORNING AND ONE AT NIGHT)
     Route: 065
  27. DIOSMIN [Suspect]
     Active Substance: DIOSMIN
     Indication: PERIPHERAL VENOUS DISEASE
     Dosage: 450 MILLIGRAM, ONCE A DAY, (ONCE IN THE MORNING)
     Route: 065
  28. GABAPENTIN. [Suspect]
     Active Substance: GABAPENTIN
     Indication: PAIN
     Dosage: 600 MILLIGRAM, ONCE A DAY, (0.5 PER 1 DAY)
     Route: 065
  29. GABAPENTIN. [Suspect]
     Active Substance: GABAPENTIN
     Dosage: 1200 MILLIGRAM, ONCE A DAY
     Route: 065
  30. LEVOTHYROXINE. [Interacting]
     Active Substance: LEVOTHYROXINE
     Indication: HYPOTHYROIDISM
     Dosage: 75 MICROGRAM, ONCE A DAY, ONCE IN THE MORNING
     Route: 065
  31. HYDROMORPHONE HYDROCHLORIDE. [Suspect]
     Active Substance: HYDROMORPHONE HYDROCHLORIDE
     Indication: PAIN
     Dosage: 4 MILLIGRAM, ONCE A DAY, (ONCE IN THE MORNING)
     Route: 065
  32. METHYLPREDNISOLONE. [Interacting]
     Active Substance: METHYLPREDNISOLONE
     Indication: PRODUCT USED FOR UNKNOWN INDICATION
     Dosage: 64 MILLIGRAM, ONCE A DAY
     Route: 042
  33. OMEPRAZOLE. [Suspect]
     Active Substance: OMEPRAZOLE
     Indication: GASTRITIS
     Dosage: 40 MILLIGRAM, TWO TIMES A DAY, (0.5 PER 1 DAY)
     Route: 065
  34. PRAMIPEXOLE. [Suspect]
     Active Substance: PRAMIPEXOLE
     Indication: RESTLESS LEGS SYNDROME
     Dosage: 2.1 MILLIGRAM, ONCE A DAY,(ONCE IN THE MORNING)
     Route: 065
  35. SPIRIVA [Interacting]
     Active Substance: TIOTROPIUM BROMIDE MONOHYDRATE
     Indication: CHRONIC OBSTRUCTIVE PULMONARY DISEASE
     Dosage: 18 MICROGRAM, ONCE A DAY,(18 UG, PUFF (1 DOSAGE) INHALATION POWDER, HARD CAPSULE)
     Route: 065
     Dates: start: 20151123
  36. MORPHINE HYDROCHLORIDE [Concomitant]
     Active Substance: MORPHINE HYDROCHLORIDE
     Indication: PRODUCT USED FOR UNKNOWN INDICATION
     Dosage: UNK
     Route: 065
  37. PREDNISONE. [Suspect]
     Active Substance: PREDNISONE
     Indication: CHRONIC OBSTRUCTIVE PULMONARY DISEASE
     Dosage: 25 MILLIGRAM, ONCE A DAY
     Route: 065
  38. ACETAZOLAMIDE. [Interacting]
     Active Substance: ACETAZOLAMIDE
     Indication: ALKALOSIS
     Dosage: 50 MILLIGRAM, ONCE A DAY, (ONCE IN THE MORNING)
     Route: 065
  39. DICLOFENAC [Interacting]
     Active Substance: DICLOFENAC
     Dosage: 150 MILLIGRAM, ONCE A DAY, (DRUG INTERVAL DOSAGE UNIT NUMBER 1 DAY)
     Route: 065
  40. DULOXETINE HYDROCHLORIDE. [Interacting]
     Active Substance: DULOXETINE HYDROCHLORIDE
     Indication: PAIN
     Dosage: 60 MILLIGRAM, TWO TIMES A DAY
     Route: 065
  41. HYDROMORPHONE [Suspect]
     Active Substance: HYDROMORPHONE
     Indication: PAIN
     Dosage: 4 MILLIGRAM, ONCE A DAY,(ONCE IN THE MORNING)
     Route: 065
  42. OXYGEN. [Interacting]
     Active Substance: OXYGEN
     Dosage: UNK
     Route: 065
  43. SERTRALINE [Suspect]
     Active Substance: SERTRALINE HYDROCHLORIDE
     Indication: DEPRESSION
     Dosage: 50 MILLIGRAM, ONCE A DAY,(ONCE IN THE MORNING)
     Route: 065
  44. PIPERACILLIN AND TAZOBACTAM [Concomitant]
     Active Substance: PIPERACILLIN SODIUM\TAZOBACTAM SODIUM
     Indication: PRODUCT USED FOR UNKNOWN INDICATION
     Dosage: UNK
     Route: 065
  45. PREDNISONE. [Concomitant]
     Active Substance: PREDNISONE
     Dosage: 25 MILLIGRAM, ONCE A DAY,(ONCE IN THE MORNING)
     Route: 065
  46. ALUMINIUM HYDROXIDE [Concomitant]
     Active Substance: ALUMINUM HYDROXIDE
     Dosage: 340 MILLIGRAM, (AS NEEDED, MAXIMUM 2X1)
     Route: 065
  47. SALMETEROL [Concomitant]
     Active Substance: SALMETEROL
     Dosage: 47 MICROGRAM (TWO PUFFS IN THE MORNING AND TWO PUFFS AT NIGHT)
     Route: 065
  48. ATORVASTATIN [Concomitant]
     Active Substance: ATORVASTATIN
     Indication: HYPERCHOLESTEROLAEMIA
     Dosage: 40 MILLIGRAM, ONCE A DAY (0?0?1)
     Route: 065
  49. CLOPIDOGREL BISULFATE. [Suspect]
     Active Substance: CLOPIDOGREL BISULFATE
     Indication: CORONARY ARTERY DISEASE
     Dosage: 75 MILLIGRAM, ONCE A DAY
     Route: 065
  50. ACETYLSALICYLIC ACID [Interacting]
     Active Substance: ASPIRIN
     Indication: CORONARY ARTERY DISEASE
     Dosage: 100 MILLIGRAM, ONCE A DAY, ONCE IN THE MORNING
     Route: 065
  51. BENSERAZIDE [Suspect]
     Active Substance: BENSERAZIDE
     Indication: RESTLESS LEGS SYNDROME
     Dosage: 25 MILLIGRAM, ONCE A DAY, (ONCE AT NIGHT)
     Route: 065
  52. DIOSMIN [Suspect]
     Active Substance: DIOSMIN
     Dosage: 450 MILLIGRAM, ONCE A DAY, (AT PATIENTS INSISTENCE)
     Route: 065
  53. DULOXETINE. [Suspect]
     Active Substance: DULOXETINE
     Indication: PAIN
     Dosage: 60 MILLIGRAM, ONCE A DAY, (ONCE IN THE MORNING)
     Route: 065
  54. LEVOTHYROXINE. [Interacting]
     Active Substance: LEVOTHYROXINE
     Dosage: 125 MICROGRAM, ONCE A DAY, HALF DOSE ONCE IN THE MORNING
     Route: 065
  55. OXYGEN. [Interacting]
     Active Substance: OXYGEN
     Indication: CHRONIC OBSTRUCTIVE PULMONARY DISEASE
     Dosage: UNK
     Route: 065
  56. TIOTROPIUM [Interacting]
     Active Substance: TIOTROPIUM
     Indication: CHRONIC OBSTRUCTIVE PULMONARY DISEASE
     Dosage: 18 MICROGRAM, ONCE A DAY, (PUFF ONCE IN THE MORNING)
     Route: 055
  57. PIPERACILLIN AND TAZOBACTAM [Concomitant]
     Active Substance: PIPERACILLIN SODIUM\TAZOBACTAM SODIUM
     Dosage: UNK
     Route: 065
  58. HESPERIDIN [Concomitant]
     Active Substance: HESPERIDIN
     Dosage: 50 MILLIGRAM, ONCE A DAY, (ONCE IN THE MORNING)
     Route: 065
  59. THEOPHYLLINE [Concomitant]
     Active Substance: THEOPHYLLINE ANHYDROUS
     Indication: CHRONIC OBSTRUCTIVE PULMONARY DISEASE
     Dosage: 200 MILLIGRAM, ONCE A DAY,QD (0?0?1)
     Route: 065
  60. DIOSMIN [Concomitant]
     Active Substance: DIOSMIN
     Indication: PERIPHERAL VENOUS DISEASE
     Dosage: 1 DOSAGE FORM, ONCE A DAY,(450 MG/50 MG),QD (1?0?0)
     Route: 065
  61. BISOPROLOL FUMARATE. [Suspect]
     Active Substance: BISOPROLOL FUMARATE
     Indication: PRODUCT USED FOR UNKNOWN INDICATION
     Dosage: 3 MILLIGRAM, (DRUG INTERVAL DOSAGE UNIT NUMBER 1 DAY)
     Route: 065
  62. DICLOFENAC [Interacting]
     Active Substance: DICLOFENAC
     Indication: PAIN
     Dosage: 75 MILLIGRAM,(AS NEEDED IN CASE OF PAIN; MAXIMUM 2X1)
     Route: 065
  63. DULOXETINE HYDROCHLORIDE. [Interacting]
     Active Substance: DULOXETINE HYDROCHLORIDE
     Indication: DEPRESSION
     Dosage: 600 MILLIGRAM, ONCE A DAY
     Route: 065
  64. FENOTEROL [Interacting]
     Active Substance: FENOTEROL
     Indication: CHRONIC OBSTRUCTIVE PULMONARY DISEASE
     Dosage: 0.05 MILLIGRAM, TWO TIMES A DAY
     Route: 055
  65. IBANDRONIC ACID. [Interacting]
     Active Substance: IBANDRONIC ACID
     Indication: OSTEOPOROSIS
     Dosage: 3 MILLIGRAM, (EVERY 3 MONTHS)
     Route: 065
  66. PRAMIPEXOLE HYDROCHLORIDE [Interacting]
     Active Substance: PRAMIPEXOLE DIHYDROCHLORIDE
     Indication: RESTLESS LEGS SYNDROME
     Dosage: 2.1 MG, QD
     Route: 065
  67. SERTRALINE [Suspect]
     Active Substance: SERTRALINE HYDROCHLORIDE
     Indication: PANIC ATTACK
     Dosage: UNK
     Route: 065
  68. ALUMINIUM HYDROXIDE [Concomitant]
     Active Substance: ALUMINUM HYDROXIDE
     Indication: GASTROOESOPHAGEAL REFLUX DISEASE
     Dosage: UNK,GEL
     Route: 065
  69. FUROSEMIDE. [Concomitant]
     Active Substance: FUROSEMIDE
     Indication: DIURETIC THERAPY
     Dosage: 40 MILLIGRAM
     Route: 065
  70. FLUTICASONE. [Concomitant]
     Active Substance: FLUTICASONE
     Indication: CHRONIC OBSTRUCTIVE PULMONARY DISEASE
     Dosage: 460 MICROGRAM, ONCE A DAY,BID
     Route: 055
  71. TIOTROPIUM [Concomitant]
     Active Substance: TIOTROPIUM
     Indication: CHRONIC OBSTRUCTIVE PULMONARY DISEASE
     Dosage: 18 MICROGRAM, ONCE A DAY
     Route: 055
  72. BISOPROLOL [Suspect]
     Active Substance: BISOPROLOL
     Dosage: 3 MILLIGRAM,DRUG INTERVAL DOSAGE UNIT NUMBER 1 DAY
     Route: 065
  73. DICLOFENAC [Interacting]
     Active Substance: DICLOFENAC
     Dosage: 75 MILLIGRAM, ONCE A DAY, (75 MG, BID)
     Route: 065
  74. METAMIZOLE SODIUM [Suspect]
     Active Substance: METAMIZOLE SODIUM
     Indication: PRODUCT USED FOR UNKNOWN INDICATION
     Dosage: 25 MILLIGRAM
     Route: 065
  75. OXYGEN. [Interacting]
     Active Substance: OXYGEN
     Indication: HYPOXIA
     Dosage: 2 LITER, (2L/MIN CONTINUOSLY)
     Route: 065
  76. OXYGEN. [Interacting]
     Active Substance: OXYGEN
     Indication: HYPOXIA
     Dosage: UNK
     Route: 065
  77. PRAMIPEXOLE. [Suspect]
     Active Substance: PRAMIPEXOLE
     Dosage: 2 MILLIGRAM, ONCE A DAY
     Route: 065
  78. SALMETEROL [Interacting]
     Active Substance: SALMETEROL
     Indication: CHRONIC OBSTRUCTIVE PULMONARY DISEASE
     Dosage: 47 MICROGRAM, TWO TIMES A DAY
     Route: 055
  79. THEOPHYLLINE [Interacting]
     Active Substance: THEOPHYLLINE ANHYDROUS
     Indication: CHRONIC OBSTRUCTIVE PULMONARY DISEASE
     Dosage: 200 MILLIGRAM, TWO TIMES A DAY, (0.5 PER 1 DAY)
     Route: 065
  80. VITAMIN D [Interacting]
     Active Substance: VITAMIN D NOS
     Indication: VITAMIN D DEFICIENCY
     Dosage: 16000 INTERNATIONAL UNIT, EVERY WEEK
     Route: 065
  81. HESPERIDIN [Concomitant]
     Active Substance: HESPERIDIN
     Indication: PERIPHERAL VENOUS DISEASE
     Dosage: UNK
     Route: 065
  82. SALMETEROL [Concomitant]
     Active Substance: SALMETEROL
     Indication: CHRONIC OBSTRUCTIVE PULMONARY DISEASE
     Dosage: 94 MICROGRAM, ONCE A DAY, (47 MICROGRAM BID 2?0?2)
     Route: 055
  83. DICLOFENAC [Concomitant]
     Active Substance: DICLOFENAC
     Indication: CHRONIC OBSTRUCTIVE PULMONARY DISEASE
     Dosage: 25 MILLIGRAM, ONCE A DAY, (QD (1?0?0))
     Route: 065
  84. ACETAZOLAMIDE. [Interacting]
     Active Substance: ACETAZOLAMIDE
     Indication: HYPERCAPNIA
     Dosage: 250 MILLIGRAM, EVERY WEEK
     Route: 065
     Dates: start: 20151123
  85. BISOPROLOL [Suspect]
     Active Substance: BISOPROLOL
     Indication: CORONARY ARTERY DISEASE
     Dosage: 2.5 MILLIGRAM, TWO TIMES A DAY
     Route: 065
  86. FLUTICASONE. [Interacting]
     Active Substance: FLUTICASONE
     Indication: CHRONIC OBSTRUCTIVE PULMONARY DISEASE
     Dosage: 920 MICROGRAM, ONCE A DAY
     Route: 055
     Dates: start: 20151123
  87. DICLOFENAC [Concomitant]
     Active Substance: DICLOFENAC
     Indication: PAIN
     Dosage: 75 MILLIGRAM, ONCE A DAY, BID
     Route: 065
  88. OMEPRAZOLE. [Concomitant]
     Active Substance: OMEPRAZOLE
     Indication: GASTRITIS
     Dosage: 40 MILLIGRAM, ONCE A DAY, (QD (1?0?0))
     Route: 065

REACTIONS (23)
  - Arthralgia [Fatal]
  - Clostridium difficile colitis [Fatal]
  - Clostridium difficile colitis [Fatal]
  - Delirium [Fatal]
  - Pain [Fatal]
  - Drug interaction [Fatal]
  - Erysipelas [Fatal]
  - Arthralgia [Unknown]
  - Prescribed underdose [Unknown]
  - Acute myocardial infarction [Fatal]
  - Acute respiratory failure [Fatal]
  - Lung disorder [Fatal]
  - Somnolence [Fatal]
  - Chronic obstructive pulmonary disease [Fatal]
  - Lung disorder [Fatal]
  - Pain [Fatal]
  - Hypercapnia [Fatal]
  - Urinary tract infection [Fatal]
  - Death [Fatal]
  - Off label use [Fatal]
  - Back pain [Fatal]
  - Hypercapnia [Fatal]
  - Acute myocardial infarction [Fatal]

NARRATIVE: CASE EVENT DATE: 201510
